FAERS Safety Report 24827568 (Version 1)
Quarter: 2025Q1

REPORT INFORMATION
  Report Type: Spontaneous
  Country: CA (occurrence: CA)
  Receive Date: 20250109
  Receipt Date: 20250109
  Transmission Date: 20250409
  Serious: Yes (Other)
  Sender: SANDOZ
  Company Number: CA-SANDOZ-SDZ2025CA001043

PATIENT
  Age: 30 Year
  Sex: Female

DRUGS (1)
  1. LISDEXAMFETAMINE DIMESYLATE [Suspect]
     Active Substance: LISDEXAMFETAMINE DIMESYLATE
     Indication: Product used for unknown indication
     Dosage: 30 MG, QD
     Route: 065

REACTIONS (7)
  - Heart rate increased [Unknown]
  - Mental impairment [Unknown]
  - Migraine [Unknown]
  - Pulse abnormal [Unknown]
  - Thinking abnormal [Unknown]
  - Anxiety [Unknown]
  - Product substitution issue [Unknown]
